FAERS Safety Report 15623715 (Version 1)
Quarter: 2018Q4

REPORT INFORMATION
  Report Type: Spontaneous
  Country: US (occurrence: US)
  Receive Date: 20181115
  Receipt Date: 20181115
  Transmission Date: 20190205
  Serious: Yes (Other)
  Sender: FDA-Public Use
  Company Number: None

PATIENT
  Age: 68 Year
  Sex: Female
  Weight: 53 kg

DRUGS (1)
  1. OMNIPAQUE [Suspect]
     Active Substance: IOHEXOL
     Indication: SCAN WITH CONTRAST
     Dosage: ?          OTHER FREQUENCY:INTRA-PROCEDURE;?
     Route: 013

REACTIONS (4)
  - Facial paralysis [None]
  - Contrast media reaction [None]
  - Cognitive disorder [None]
  - Aphasia [None]

NARRATIVE: CASE EVENT DATE: 20180904
